FAERS Safety Report 24021863 (Version 5)
Quarter: 2024Q3

REPORT INFORMATION
  Report Type: Spontaneous
  Country: ES (occurrence: ES)
  Receive Date: 20240627
  Receipt Date: 20240710
  Transmission Date: 20241017
  Serious: No
  Sender: ROCHE
  Company Number: ES-ROCHE-3547845

PATIENT
  Age: 57 Year
  Sex: Female

DRUGS (2)
  1. FARICIMAB [Suspect]
     Active Substance: FARICIMAB
     Indication: Choroidal neovascularisation
     Dosage: SUBSEQUENT DOSES ON 02/JAN/2024, 29/JAN/2024, 26/FEB/2024, EVERY 4 WEEKS FOR THE FIRST 4 DOSES. AFTE
     Route: 050
     Dates: start: 20231204
  2. LUCENTIS [Concomitant]
     Active Substance: RANIBIZUMAB
     Indication: Choroidal neovascularisation
     Dosage: 17/JUL/2023, 28/AUG/2023, 25/SEP/2023, 06/NOV/2023
     Dates: start: 20230326

REACTIONS (1)
  - Intra-ocular injection complication [Not Recovered/Not Resolved]
